FAERS Safety Report 5400962-X (Version None)
Quarter: 2007Q3

REPORT INFORMATION
  Report Type: 
  Country: None (occurrence: None)
  Receive Date: 20070730
  Receipt Date: 20070720
  Transmission Date: 20080115
  Serious: Yes (Hospitalization)
  Sender: FDA-Public Use
  Company Number: FR-AMGEN-UK232141

PATIENT
  Sex: Female

DRUGS (4)
  1. PANITUMUMAB [Suspect]
     Indication: COLORECTAL CANCER
     Route: 042
     Dates: start: 20070615, end: 20070617
  2. IRINOTECAN HCL [Suspect]
  3. FOLINIC ACID [Suspect]
  4. FLUOROURACIL [Suspect]
     Route: 042

REACTIONS (8)
  - APLASIA [None]
  - CAMPYLOBACTER INFECTION [None]
  - CULTURE STOOL POSITIVE [None]
  - DEHYDRATION [None]
  - DIARRHOEA [None]
  - FEBRILE BONE MARROW APLASIA [None]
  - NAUSEA [None]
  - VOMITING [None]
